FAERS Safety Report 5145648-4 (Version None)
Quarter: 2006Q4

REPORT INFORMATION
  Report Type: 
  Country: None (occurrence: None)
  Receive Date: 20061102
  Receipt Date: 20061026
  Transmission Date: 20070319
  Serious: Yes (Other)
  Sender: FDA-Public Use
  Company Number: 2006-05601

PATIENT
  Age: 65 Year
  Sex: Male

DRUGS (3)
  1. ETOPOSIDE [Suspect]
     Indication: CHEMOTHERAPY
     Dosage: 2.5 G, INTRAVENOUS
     Route: 042
  2. CARBOPLATIN [Suspect]
     Indication: CHEMOTHERAPY
     Dosage: 1.5 G, INTRAVENOUS
     Route: 042
  3. TREOSULFAN(TREOSULFAN) [Suspect]
     Dosage: 70.6 G, INTRAVENOUS
     Route: 042

REACTIONS (1)
  - PERICARDITIS [None]
